FAERS Safety Report 9285415 (Version 1)
Quarter: 2013Q2

REPORT INFORMATION
  Report Type: Spontaneous
  Country: US (occurrence: US)
  Receive Date: 20130513
  Receipt Date: 20130513
  Transmission Date: 20140414
  Serious: No
  Sender: FDA-Public Use
  Company Number: US-PFIZER INC-2013146613

PATIENT
  Age: 55 Year
  Sex: Female
  Weight: 45.35 kg

DRUGS (3)
  1. ZOLOFT [Suspect]
     Indication: MAJOR DEPRESSION
     Dosage: 100 MG, DAILY
     Route: 048
     Dates: start: 2013
  2. ZOLOFT [Suspect]
     Indication: ANXIETY DISORDER
     Dosage: 200 MG, DAILY
     Route: 048
     Dates: start: 20130305
  3. BUSPAR [Concomitant]
     Indication: ANXIETY DISORDER
     Dosage: 10 MG, 3X/DAY

REACTIONS (1)
  - Drug ineffective [Unknown]
